FAERS Safety Report 8121948-0 (Version None)
Quarter: 2012Q1

REPORT INFORMATION
  Report Type: 
  Country: None (occurrence: None)
  Receive Date: 20120207
  Receipt Date: 20120207
  Transmission Date: 20120608
  Serious: No
  Sender: FDA-Public Use
  Company Number: None

PATIENT
  Sex: Female

DRUGS (1)
  1. IMITREX STATDOSE [Suspect]
     Indication: MIGRAINE
     Dosage: 6MG ONCE SQ
     Route: 058
     Dates: start: 20120205

REACTIONS (1)
  - BLINDNESS UNILATERAL [None]
